FAERS Safety Report 7315611-3 (Version None)
Quarter: 2011Q1

REPORT INFORMATION
  Report Type: 
  Country: None (occurrence: None)
  Receive Date: 20110225
  Receipt Date: 20110223
  Transmission Date: 20110831
  Serious: Yes (Death)
  Sender: FDA-Public Use
  Company Number: GB-ABBOTT-10P-167-0691812-00

PATIENT
  Sex: Male
  Weight: 58 kg

DRUGS (3)
  1. ACYCLOVIR [Concomitant]
     Indication: ENCEPHALITIS
  2. GOLD [Concomitant]
     Indication: PRODUCT USED FOR UNKNOWN INDICATION
     Dates: start: 20061215, end: 20081015
  3. HUMIRA [Suspect]
     Indication: RHEUMATOID ARTHRITIS
     Route: 058
     Dates: start: 20031015, end: 20051015

REACTIONS (3)
  - ENCEPHALITIS [None]
  - SYNCOPE [None]
  - CONVULSION [None]
